FAERS Safety Report 8203107 (Version 9)
Quarter: 2015Q4

REPORT INFORMATION
  Report Type: Spontaneous
  Country: US (occurrence: US)
  Receive Date: 20111027
  Receipt Date: 20151218
  Transmission Date: 20160305
  Serious: Yes (Hospitalization, Other)
  Sender: FDA-Public Use
  Company Number: US-ASTRAZENECA-2011SE10249

PATIENT
  Age: 46 Year
  Sex: Female
  Weight: 48.1 kg

DRUGS (77)
  1. PULMICORT FLEXHALER [Suspect]
     Active Substance: BUDESONIDE
     Route: 055
  2. NEXIUM [Suspect]
     Active Substance: ESOMEPRAZOLE MAGNESIUM
     Indication: GASTROOESOPHAGEAL REFLUX DISEASE
     Route: 048
     Dates: start: 2005
  3. PRILOSEC [Suspect]
     Active Substance: OMEPRAZOLE MAGNESIUM
     Route: 048
  4. LYRICA [Concomitant]
     Active Substance: PREGABALIN
     Indication: FIBROMYALGIA
     Dosage: 100 MG THREE TIMES A DAY
     Route: 048
  5. VENTOLIN [Concomitant]
     Active Substance: ALBUTEROL SULFATE
     Indication: DYSPNOEA
     Dosage: 90MCG PRN
     Route: 055
  6. SOMA [Concomitant]
     Active Substance: CARISOPRODOL
     Indication: RESTLESS LEGS SYNDROME
     Route: 048
  7. METHOTREXATE [Concomitant]
     Active Substance: METHOTREXATE
     Indication: RHEUMATOID ARTHRITIS
     Dosage: 2.5MG 5 TAB M AND THUR
     Route: 048
  8. VITAMIN E [Concomitant]
     Active Substance: .ALPHA.-TOCOPHEROL
     Indication: HAIR DISORDER
  9. RHINOCORT AQUA [Suspect]
     Active Substance: BUDESONIDE
     Indication: SINUSITIS
     Dosage: 64MCG BID
     Route: 045
  10. NEXIUM [Suspect]
     Active Substance: ESOMEPRAZOLE MAGNESIUM
     Indication: GASTRITIS
     Route: 048
     Dates: start: 2005
  11. NEXIUM [Suspect]
     Active Substance: ESOMEPRAZOLE MAGNESIUM
     Indication: GASTROOESOPHAGEAL REFLUX DISEASE
     Dosage: 2 AT NIGHT
     Route: 048
     Dates: start: 2015
  12. TOPROL XL [Suspect]
     Active Substance: METOPROLOL SUCCINATE
     Route: 048
  13. PHRENILIN [Concomitant]
     Active Substance: ACETAMINOPHEN\BUTALBITAL\CAFFEINE\CODEINE PHOSPHATE
     Indication: MIGRAINE
     Dosage: 325-50MG 2 TAB Q4H
     Route: 048
     Dates: start: 1991
  14. CARAFATE [Concomitant]
     Active Substance: SUCRALFATE
     Indication: GASTRIC DISORDER
     Route: 048
  15. ALBUTEROL. [Concomitant]
     Active Substance: ALBUTEROL
     Indication: BRONCHITIS
     Dosage: AS REQUIRED
     Route: 055
  16. RHINOCORT AQUA [Suspect]
     Active Substance: BUDESONIDE
     Indication: SINUSITIS
     Dosage: 32MCG 2 SPRAY BID
     Route: 045
  17. TOPROL XL [Suspect]
     Active Substance: METOPROLOL SUCCINATE
     Route: 048
     Dates: start: 2012
  18. NORVASC [Concomitant]
     Active Substance: AMLODIPINE BESYLATE
     Indication: LUPUS-LIKE SYNDROME
     Route: 048
     Dates: start: 2008
  19. MAXZIDE [Concomitant]
     Active Substance: HYDROCHLOROTHIAZIDE\TRIAMTERENE
     Indication: DIURETIC THERAPY
     Route: 048
  20. MOBIC [Concomitant]
     Active Substance: MELOXICAM
     Indication: MUSCLE DISORDER
     Route: 048
  21. LASIX [Concomitant]
     Active Substance: FUROSEMIDE
     Indication: DIURETIC THERAPY
     Route: 048
  22. VALIUM [Concomitant]
     Active Substance: DIAZEPAM
     Indication: SLEEP DISORDER
     Route: 048
  23. VENTOLIN [Concomitant]
     Active Substance: ALBUTEROL SULFATE
     Indication: MULTIPLE ALLERGIES
     Dosage: 90MCG PRN
     Route: 055
  24. VENTOLIN [Concomitant]
     Active Substance: ALBUTEROL SULFATE
     Indication: PNEUMONIA
     Dosage: 90MCG PRN
     Route: 055
  25. FOLIC ACID. [Concomitant]
     Active Substance: FOLIC ACID
     Indication: ALOPECIA
     Route: 048
  26. MUPIROCIN. [Concomitant]
     Active Substance: MUPIROCIN
     Indication: RAYNAUD^S PHENOMENON
     Route: 061
  27. VITAMIN B12 [Concomitant]
     Active Substance: CYANOCOBALAMIN
     Dosage: 3000 DAILY
     Route: 048
  28. CINNAMON. [Concomitant]
     Active Substance: CINNAMON
     Indication: BLOOD GLUCOSE ABNORMAL
  29. YEAST [Concomitant]
     Active Substance: YEAST
     Indication: DRUG HYPERSENSITIVITY
  30. NIACIN. [Concomitant]
     Active Substance: NIACIN
     Indication: DRUG HYPERSENSITIVITY
  31. NEXIUM [Suspect]
     Active Substance: ESOMEPRAZOLE MAGNESIUM
     Indication: GASTRITIS
     Route: 048
     Dates: start: 2001
  32. NEXIUM [Suspect]
     Active Substance: ESOMEPRAZOLE MAGNESIUM
     Indication: GASTROOESOPHAGEAL REFLUX DISEASE
     Route: 048
     Dates: start: 2005
  33. NEXIUM [Suspect]
     Active Substance: ESOMEPRAZOLE MAGNESIUM
     Indication: GASTROOESOPHAGEAL REFLUX DISEASE
     Dosage: 2 AT NIGHT
     Route: 048
     Dates: start: 2015
  34. CRESTOR [Suspect]
     Active Substance: ROSUVASTATIN CALCIUM
     Route: 048
  35. LYRICA [Concomitant]
     Active Substance: PREGABALIN
     Indication: NEUROPATHY PERIPHERAL
     Dosage: 100 MG THREE TIMES A DAY
     Route: 048
  36. ZOCOR [Concomitant]
     Active Substance: SIMVASTATIN
     Indication: BLOOD PRESSURE ABNORMAL
     Route: 048
  37. REQUIP [Concomitant]
     Active Substance: ROPINIROLE HYDROCHLORIDE
     Indication: RESTLESS LEGS SYNDROME
     Route: 048
  38. ULTRAM [Concomitant]
     Active Substance: TRAMADOL HYDROCHLORIDE
     Indication: ARTHRITIS
     Dosage: 100 MG EVERY SIX HOURS
     Route: 048
  39. XANAX [Concomitant]
     Active Substance: ALPRAZOLAM
     Indication: ANXIETY
     Dosage: MONTHLY
  40. VALIUM [Concomitant]
     Active Substance: DIAZEPAM
     Indication: ABDOMINAL PAIN UPPER
     Route: 048
  41. VENTOLIN [Concomitant]
     Active Substance: ALBUTEROL SULFATE
     Indication: MULTIPLE ALLERGIES
     Route: 055
  42. ALBUTEROL. [Concomitant]
     Active Substance: ALBUTEROL
     Indication: PNEUMONIA
     Dosage: AS REQUIRED
     Route: 055
  43. PYRIDIUM [Concomitant]
     Active Substance: PHENAZOPYRIDINE
     Indication: ANGIOPATHY
     Route: 048
  44. VITAMIN D3 [Concomitant]
     Active Substance: CHOLECALCIFEROL
     Indication: MINERAL SUPPLEMENTATION
     Route: 048
  45. VITAMIN E [Concomitant]
     Active Substance: .ALPHA.-TOCOPHEROL
     Indication: HAIR DISORDER
  46. RESTASIS [Concomitant]
     Active Substance: CYCLOSPORINE
     Route: 047
  47. PREDNISONE. [Concomitant]
     Active Substance: PREDNISONE
     Indication: LUPUS-LIKE SYNDROME
     Route: 048
  48. PREDNISONE. [Concomitant]
     Active Substance: PREDNISONE
     Indication: IMMUNE SYSTEM DISORDER
     Route: 048
  49. ULTRAM [Concomitant]
     Active Substance: TRAMADOL HYDROCHLORIDE
     Indication: ARTHRITIS
     Dosage: 50MG 2TAB Q6H
     Route: 048
  50. ALBUTEROL. [Concomitant]
     Active Substance: ALBUTEROL
     Indication: LUNG DISORDER
     Dosage: AS REQUIRED
     Route: 055
  51. BETAMETHASONE DIPROPIONATE. [Concomitant]
     Active Substance: BETAMETHASONE DIPROPIONATE
     Indication: LUPUS-LIKE SYNDROME
     Route: 061
  52. BETAMETHASONE DIPROPIONATE. [Concomitant]
     Active Substance: BETAMETHASONE DIPROPIONATE
     Indication: LUPUS-LIKE SYNDROME
  53. CALCIUM [Concomitant]
     Active Substance: CALCIUM
     Indication: MINERAL SUPPLEMENTATION
     Route: 048
  54. XANAX [Concomitant]
     Active Substance: ALPRAZOLAM
     Indication: ANXIETY
     Route: 048
  55. CLARITIN [Concomitant]
     Active Substance: LORATADINE
  56. LASIX [Concomitant]
     Active Substance: FUROSEMIDE
     Indication: RENAL FAILURE
     Route: 048
  57. VENTOLIN [Concomitant]
     Active Substance: ALBUTEROL SULFATE
     Indication: DYSPNOEA
     Route: 055
  58. KLORCON [Concomitant]
     Indication: MINERAL SUPPLEMENTATION
     Route: 048
  59. NEXIUM [Suspect]
     Active Substance: ESOMEPRAZOLE MAGNESIUM
     Indication: GASTROOESOPHAGEAL REFLUX DISEASE
     Route: 048
     Dates: start: 2001
  60. NEXIUM [Suspect]
     Active Substance: ESOMEPRAZOLE MAGNESIUM
     Indication: GASTROOESOPHAGEAL REFLUX DISEASE
     Route: 048
     Dates: start: 2001
  61. CRESTOR [Suspect]
     Active Substance: ROSUVASTATIN CALCIUM
     Route: 048
     Dates: start: 2012
  62. ZOMIG [Suspect]
     Active Substance: ZOLMITRIPTAN
     Indication: MIGRAINE
     Route: 048
  63. ZOMIG [Suspect]
     Active Substance: ZOLMITRIPTAN
     Indication: MIGRAINE
     Route: 048
  64. MAXZIDE [Concomitant]
     Active Substance: HYDROCHLOROTHIAZIDE\TRIAMTERENE
     Indication: DIURETIC THERAPY
  65. VENTOLIN [Concomitant]
     Active Substance: ALBUTEROL SULFATE
     Indication: BRONCHITIS
     Dosage: 90MCG PRN
     Route: 055
  66. VITAMIN D3 [Concomitant]
     Active Substance: CHOLECALCIFEROL
     Indication: MINERAL SUPPLEMENTATION
  67. ASTELIN [Concomitant]
     Active Substance: AZELASTINE HYDROCHLORIDE
  68. MONTELUKAST [Concomitant]
     Active Substance: MONTELUKAST SODIUM
     Indication: MULTIPLE ALLERGIES
  69. ZOMIG [Suspect]
     Active Substance: ZOLMITRIPTAN
     Indication: MIGRAINE
     Route: 048
  70. REQUIP [Concomitant]
     Active Substance: ROPINIROLE HYDROCHLORIDE
     Indication: RESTLESS LEGS SYNDROME
     Route: 048
  71. VENTOLIN [Concomitant]
     Active Substance: ALBUTEROL SULFATE
     Indication: PNEUMONIA
     Route: 055
  72. VENTOLIN [Concomitant]
     Active Substance: ALBUTEROL SULFATE
     Indication: BRONCHITIS
     Route: 055
  73. SOMA [Concomitant]
     Active Substance: CARISOPRODOL
     Indication: TENSION HEADACHE
     Route: 048
  74. PLAQUANIL [Concomitant]
     Indication: LUPUS-LIKE SYNDROME
     Route: 048
  75. ALBUTEROL. [Concomitant]
     Active Substance: ALBUTEROL
     Indication: MULTIPLE ALLERGIES
     Dosage: AS REQUIRED
     Route: 055
  76. LIDODERM [Concomitant]
     Active Substance: LIDOCAINE
     Dosage: AS REQUIRED
  77. COQ 10 [Concomitant]
     Active Substance: UBIDECARENONE
     Indication: CARDIAC DISORDER
     Dosage: 100 MG AT NIGHT

REACTIONS (52)
  - Dyspnoea [Unknown]
  - Red blood cells urine positive [Unknown]
  - White blood cells urine positive [Unknown]
  - Restless legs syndrome [Unknown]
  - Splenomegaly [Unknown]
  - Renal failure [Unknown]
  - Herpes zoster [Unknown]
  - Drug hypersensitivity [Unknown]
  - Electrocardiogram abnormal [Unknown]
  - Oesophageal disorder [Not Recovered/Not Resolved]
  - Leriche syndrome [Unknown]
  - Haemorrhage [Unknown]
  - Migraine [Unknown]
  - Memory impairment [Not Recovered/Not Resolved]
  - Mood swings [Unknown]
  - Increased tendency to bruise [Unknown]
  - Blood cholesterol increased [Unknown]
  - Drug ineffective [Unknown]
  - Sjogren^s syndrome [Unknown]
  - Fracture [Recovered/Resolved]
  - Pneumonia [Recovered/Resolved]
  - Lymphadenopathy [Unknown]
  - Headache [Unknown]
  - Skin lesion [Recovered/Resolved]
  - Monoclonal gammopathy [Unknown]
  - Anxiety disorder [Unknown]
  - Extrasystoles [Recovered/Resolved]
  - Blood potassium abnormal [Recovered/Resolved]
  - Sinusitis [Unknown]
  - Sinus disorder [Unknown]
  - Adverse drug reaction [Unknown]
  - Vomiting [Unknown]
  - Oesophageal pain [Not Recovered/Not Resolved]
  - Cognitive disorder [Unknown]
  - Malaise [Unknown]
  - Jaw disorder [Unknown]
  - Abdominal discomfort [Unknown]
  - Neuropathy peripheral [Unknown]
  - Multiple allergies [Unknown]
  - Raynaud^s phenomenon [Unknown]
  - Fatigue [Unknown]
  - Intentional product misuse [Recovered/Resolved]
  - Systemic lupus erythematosus [Not Recovered/Not Resolved]
  - Tension headache [Not Recovered/Not Resolved]
  - Bronchitis chronic [Unknown]
  - Blood calcium increased [Unknown]
  - Tympanic membrane perforation [Unknown]
  - Dental cyst [Unknown]
  - Haemorrhagic diathesis [Unknown]
  - Fall [Recovered/Resolved]
  - Gastrooesophageal reflux disease [Unknown]
  - Drug dose omission [Unknown]

NARRATIVE: CASE EVENT DATE: 2004
